FAERS Safety Report 6336111-3 (Version None)
Quarter: 2009Q3

REPORT INFORMATION
  Report Type: 
  Country: None (occurrence: None)
  Receive Date: 20090828
  Receipt Date: 20090818
  Transmission Date: 20100115
  Serious: Yes (Other)
  Sender: FDA-Public Use
  Company Number: ADR14592009

PATIENT
  Age: 81 Year
  Sex: Female

DRUGS (7)
  1. CITALOPRAM HYDROBROMIDE [Suspect]
     Indication: ANXIETY
     Dosage: 10MG
     Route: 048
     Dates: start: 20080623, end: 20080627
  2. AMLODIPINE [Concomitant]
  3. ATORVASTATIN [Concomitant]
  4. BUSCOPAN [Concomitant]
  5. DOMPERIDONE [Concomitant]
  6. DOXAZOSIN [Concomitant]
  7. ZOPICLONE [Concomitant]

REACTIONS (1)
  - ATRIAL FIBRILLATION [None]
